FAERS Safety Report 8340062-2 (Version None)
Quarter: 2012Q2

REPORT INFORMATION
  Report Type: 
  Country: None (occurrence: None)
  Receive Date: 20120507
  Receipt Date: 20090617
  Transmission Date: 20120825
  Serious: No
  Sender: FDA-Public Use
  Company Number: US-TEVA-2009002799

PATIENT
  Sex: Male
  Weight: 99.88 kg

DRUGS (1)
  1. TREANDA [Suspect]
     Indication: CHRONIC LYMPHOCYTIC LEUKAEMIA
     Dosage: 3 MG/M2;
     Route: 042
     Dates: start: 20090107, end: 20090306

REACTIONS (1)
  - NO THERAPEUTIC RESPONSE [None]
